FAERS Safety Report 24756009 (Version 1)
Quarter: 2024Q4

REPORT INFORMATION
  Report Type: Report from Study
  Country: US (occurrence: US)
  Receive Date: 20241219
  Receipt Date: 20241219
  Transmission Date: 20250115
  Serious: Yes (Hospitalization, Other)
  Sender: ABBVIE
  Company Number: US-ABBVIE-6052844

PATIENT
  Age: 51 Year
  Sex: Female

DRUGS (2)
  1. SKYRIZI [Suspect]
     Active Substance: RISANKIZUMAB-RZAA
     Indication: Crohn^s disease
     Dosage: FIST AND LAST ADMIN DATE 2024?WEEK 0
     Route: 042
  2. SKYRIZI [Suspect]
     Active Substance: RISANKIZUMAB-RZAA
     Indication: Crohn^s disease
     Dosage: WEEK 4
     Route: 042
     Dates: start: 20241209

REACTIONS (6)
  - Blood pressure increased [Recovered/Resolved]
  - Tremor [Unknown]
  - Fatigue [Recovered/Resolved]
  - Bone pain [Recovered/Resolved]
  - Daydreaming [Not Recovered/Not Resolved]
  - Loss of consciousness [Unknown]

NARRATIVE: CASE EVENT DATE: 20240101
